FAERS Safety Report 25581877 (Version 1)
Quarter: 2025Q3

REPORT INFORMATION
  Report Type: Spontaneous
  Country: US (occurrence: US)
  Receive Date: 20250719
  Receipt Date: 20250719
  Transmission Date: 20251020
  Serious: Yes (Hospitalization, Other)
  Sender: SANOFI AVENTIS
  Company Number: US-DialogSolutions-SAAVPROD-PI800534-C1

PATIENT
  Age: 67 Year

DRUGS (2)
  1. LEFLUNOMIDE [Suspect]
     Active Substance: LEFLUNOMIDE
     Indication: Rheumatoid arthritis
  2. PLAQUENIL [Suspect]
     Active Substance: HYDROXYCHLOROQUINE SULFATE
     Indication: Rheumatoid arthritis

REACTIONS (8)
  - Pulmonary cavitation [Unknown]
  - Necrobiosis [Unknown]
  - Pulmonary mass [Unknown]
  - Pneumothorax spontaneous [Unknown]
  - Rheumatoid arthritis [Unknown]
  - Joint stiffness [Unknown]
  - Arthralgia [Unknown]
  - Rebound effect [Unknown]
